FAERS Safety Report 4912911-9 (Version None)
Quarter: 2006Q1

REPORT INFORMATION
  Report Type: 
  Country: None (occurrence: None)
  Receive Date: 20060210
  Receipt Date: 20060203
  Transmission Date: 20060701
  Serious: Yes (Other)
  Sender: FDA-Public Use
  Company Number: 200610414GDS

PATIENT
  Age: 77 Year
  Sex: Female

DRUGS (2)
  1. CIPRO [Suspect]
     Dosage: 800 MG, TOTAL DAILY, INTRAVENOUS
     Route: 042
  2. METFORMIN [Concomitant]

REACTIONS (3)
  - BLOOD GLUCOSE INCREASED [None]
  - CONDITION AGGRAVATED [None]
  - DIABETES MELLITUS [None]
